FAERS Safety Report 6695885-2 (Version None)
Quarter: 2010Q2

REPORT INFORMATION
  Report Type: 
  Country: None (occurrence: None)
  Receive Date: 20100426
  Receipt Date: 20100217
  Transmission Date: 20101027
  Serious: No
  Sender: FDA-Public Use
  Company Number: G0011495A

PATIENT
  Age: 28 Year
  Sex: Male
  Weight: 85 kg

DRUGS (14)
  1. ONDANSETRON [Suspect]
     Indication: VOMITING
     Dosage: 10MG SINGLE DOSE
     Route: 042
     Dates: start: 19920512, end: 19920512
  2. PRIMAXIN [Concomitant]
     Indication: SEPSIS
     Dosage: 1G THREE TIMES PER DAY
     Route: 042
     Dates: start: 19920410, end: 19920526
  3. TOBRAMYCIN [Concomitant]
     Indication: SEPSIS
     Dosage: 250MG TWICE PER DAY
     Route: 042
     Dates: start: 19920506
  4. METHADONE HYDROCHLORIDE [Concomitant]
     Indication: DRUG DEPENDENCE
     Dosage: 20MG TWICE PER DAY
     Route: 048
     Dates: start: 19920417
  5. CLONIDINE HYDROCHLORIDE [Concomitant]
     Dosage: .3MG PER DAY
     Route: 062
     Dates: start: 19920218
  6. RANITIDINE [Concomitant]
     Indication: PROPHYLAXIS
     Dosage: 50MG THREE TIMES PER DAY
     Route: 042
     Dates: start: 19920315
  7. WARFARIN SODIUM [Concomitant]
     Indication: DEEP VEIN THROMBOSIS
     Dosage: 7.5MG PER DAY
     Route: 048
     Dates: start: 19920422
  8. METOCLOPRAMIDE HYDROCHLORIDE [Concomitant]
     Dosage: 10MG THREE TIMES PER DAY
     Route: 042
     Dates: start: 19920305
  9. ANTIBIOTICS [Concomitant]
     Route: 042
  10. MONOCLONAL ANTIBODY (UNSPECIFIED) [Concomitant]
  11. NARCOTICS [Concomitant]
  12. BENZODIAZEPINES [Concomitant]
  13. MIDAZOLAM MALEATE [Concomitant]
     Dates: start: 19920201, end: 19920510
  14. FENTANYL CITRATE [Concomitant]
     Dates: start: 19920215, end: 19920505

REACTIONS (3)
  - CONVULSION [None]
  - FOAMING AT MOUTH [None]
  - GRAND MAL CONVULSION [None]
